FAERS Safety Report 20912655 (Version 1)
Quarter: 2022Q2

REPORT INFORMATION
  Report Type: Report from Study
  Country: JP (occurrence: JP)
  Receive Date: 20220603
  Receipt Date: 20220603
  Transmission Date: 20220720
  Serious: Yes (Hospitalization, Other)
  Sender: FDA-Public Use
  Company Number: JP-AMERICAN REGENT INC-2022001508

PATIENT
  Age: 29 Year
  Sex: Female
  Weight: 67.4 kg

DRUGS (13)
  1. FERINJECT [Suspect]
     Active Substance: FERRIC CARBOXYMALTOSE
     Indication: Iron deficiency anaemia
     Dosage: 500 MILLIGRAM, 1 IN 1D
     Dates: start: 20220201, end: 20220201
  2. FERINJECT [Suspect]
     Active Substance: FERRIC CARBOXYMALTOSE
     Dosage: 500 MILLIGRAM, 1 IN 1D
     Dates: start: 20220208, end: 20220208
  3. RITODRINE HYDROCHLORIDE [Concomitant]
     Active Substance: RITODRINE HYDROCHLORIDE
     Indication: Premature labour
     Dosage: UNK UNKNOWN
  4. DEXTROSE\MAGNESIUM SULFATE HEPTAHYDRATE [Concomitant]
     Active Substance: DEXTROSE\MAGNESIUM SULFATE HEPTAHYDRATE
     Indication: Premature labour
     Dosage: UNK UNKNOWN
     Route: 042
  5. CROMOGLICATE NA [Concomitant]
     Indication: Sinusitis
     Dosage: UNK UNKNOWN
     Route: 045
  6. CAMPHOR\CAPSICUM\METHYL SALICYLATE [Concomitant]
     Active Substance: CAMPHOR\CAPSICUM\METHYL SALICYLATE
     Indication: Back pain
     Dosage: UNK UNKNOWN
     Route: 061
  7. HEPARINOID [Concomitant]
     Indication: Dry skin
     Dosage: UNK UNKNOWN
     Route: 061
  8. MAGNESIUM OXIDE [Concomitant]
     Active Substance: MAGNESIUM OXIDE
     Indication: Constipation
     Dosage: UNK UNKNOWN
     Route: 048
  9. PRIMPERAN [Concomitant]
     Active Substance: METOCLOPRAMIDE HYDROCHLORIDE
     Indication: Nausea
     Dosage: UNK UNKNOWN
     Route: 048
  10. RYOKYOJUTSUKANTO [Concomitant]
     Indication: Dizziness
     Dosage: UNK UNKNOWN
     Route: 048
  11. BETAHISTINE MESILATE [Concomitant]
     Active Substance: BETAHISTINE MESILATE
     Indication: Vertigo positional
     Dosage: UNK UNKNOWN
     Route: 048
  12. EPHEDRA SINICA STEM\HERBALS [Concomitant]
     Active Substance: EPHEDRA SINICA STEM\HERBALS
     Indication: Rhinorrhoea
     Dosage: UNK UNKNOWN
     Route: 048
  13. RIKKUNSHITO [ATRACTYLODES LANCEA RHIZOME;CITRUS RETICULATA PEEL;GLYCYR [Concomitant]
     Indication: Gastrooesophageal reflux disease
     Dosage: UNK UNKNOWN
     Route: 048

REACTIONS (3)
  - Post procedural haemorrhage [Unknown]
  - Caesarean section [Unknown]
  - Maternal exposure during pregnancy [Unknown]

NARRATIVE: CASE EVENT DATE: 20220201
